FAERS Safety Report 9139399 (Version 1)
Quarter: 2013Q1

REPORT INFORMATION
  Report Type: Spontaneous
  Country: US (occurrence: None)
  Receive Date: 20130206
  Receipt Date: 20130206
  Transmission Date: 20140127
  Serious: Yes (Death)
  Sender: FDA-Public Use
  Company Number: NSR_00879_2013

PATIENT
  Age: 48 Year
  Sex: Female

DRUGS (5)
  1. VENLAFAXINE [Suspect]
     Dosage: (DF UNKNOWN)
  2. MORPHINE [Suspect]
     Dosage: (DF UNKNOWN)
  3. AMITRIPTYLINE [Suspect]
     Dosage: (DF UNKNOWN)
  4. METOCLOPRAMIDE [Suspect]
  5. CITALOPRAM [Suspect]
     Dosage: (DF UNKNOWN)

REACTIONS (2)
  - Poisoning [None]
  - Drug abuse [None]
